FAERS Safety Report 16119128 (Version 3)
Quarter: 2019Q2

REPORT INFORMATION
  Report Type: Report from Study
  Country: KR (occurrence: KR)
  Receive Date: 20190326
  Receipt Date: 20190408
  Transmission Date: 20190711
  Serious: Yes (Hospitalization, Other)
  Sender: FDA-Public Use
  Company Number: KR-ALEXION PHARMACEUTICALS INC.-A201701440

PATIENT
  Age: 4 Month
  Sex: Male
  Weight: 11.9 kg

DRUGS (2)
  1. ASFOTASE ALFA [Suspect]
     Active Substance: ASFOTASE ALFA
     Dosage: 3 MG/KG, TIW
     Route: 058
     Dates: start: 20160622
  2. ASFOTASE ALFA [Suspect]
     Active Substance: ASFOTASE ALFA
     Indication: HYPOPHOSPHATASIA
     Dosage: 1 MG/KG, TIW
     Route: 058
     Dates: start: 20160622

REACTIONS (6)
  - Intensive care [Recovered/Resolved]
  - Blood phosphorus increased [Unknown]
  - Vitamin D increased [Recovered/Resolved]
  - Vitamin B6 increased [Not Recovered/Not Resolved]
  - Blood parathyroid hormone decreased [Not Recovered/Not Resolved]
  - Blood alkaline phosphatase increased [Not Recovered/Not Resolved]

NARRATIVE: CASE EVENT DATE: 20161014
